FAERS Safety Report 21721181 (Version 1)
Quarter: 2022Q4

REPORT INFORMATION
  Report Type: Spontaneous
  Country: US (occurrence: US)
  Receive Date: 20221213
  Receipt Date: 20221213
  Transmission Date: 20230112
  Serious: No
  Sender: FDA-Public Use
  Company Number: US-SA-SAC20221212000040

PATIENT
  Sex: Female

DRUGS (2)
  1. DUPIXENT [Suspect]
     Active Substance: DUPILUMAB
     Dosage: 300 MG, QOW
     Route: 058
     Dates: start: 20220719
  2. RINVOQ [Concomitant]
     Active Substance: UPADACITINIB

REACTIONS (3)
  - Rash erythematous [Unknown]
  - Condition aggravated [Unknown]
  - Intentional dose omission [Unknown]
